FAERS Safety Report 9388943 (Version 1)
Quarter: 2013Q3

REPORT INFORMATION
  Report Type: Spontaneous
  Country: AT (occurrence: AT)
  Receive Date: 20130708
  Receipt Date: 20130708
  Transmission Date: 20140515
  Serious: Yes (Hospitalization)
  Sender: FDA-Public Use
  Company Number: AT-CELGENEUS-009-POMAL-13051143

PATIENT
  Age: 59 Year
  Sex: Male

DRUGS (3)
  1. POMALYST [Suspect]
     Indication: PLASMA CELL MYELOMA
     Dosage: 4 MILLIGRAM
     Route: 048
     Dates: start: 20130430, end: 20130519
  2. POMALYST [Suspect]
     Dosage: 4 MILLIGRAM
     Route: 048
     Dates: start: 20130604
  3. AMOXICILLIN [Concomitant]
     Indication: PROPHYLAXIS
     Dosage: 2X1000
     Route: 065
     Dates: start: 20130430

REACTIONS (2)
  - Colitis [Recovered/Resolved]
  - Thrombocytopenia [Recovered/Resolved]
